FAERS Safety Report 14072004 (Version 2)
Quarter: 2018Q1

REPORT INFORMATION
  Report Type: Spontaneous
  Country: US (occurrence: US)
  Receive Date: 20171010
  Receipt Date: 20180105
  Transmission Date: 20180508
  Serious: No
  Sender: FDA-Public Use
  Company Number: US-SA-2017SA154039

PATIENT
  Age: 48 Year
  Sex: Male

DRUGS (4)
  1. XOLAIR [Concomitant]
     Active Substance: OMALIZUMAB
     Dosage: FORM: SOLUTION
     Route: 065
  2. DUPIXENT [Suspect]
     Active Substance: DUPILUMAB
     Route: 058
     Dates: start: 20170710
  3. DUPIXENT [Suspect]
     Active Substance: DUPILUMAB
     Route: 058
     Dates: start: 2017
  4. DUPIXENT [Suspect]
     Active Substance: DUPILUMAB
     Route: 058
     Dates: start: 201707

REACTIONS (5)
  - Eye discharge [Not Recovered/Not Resolved]
  - Skin irritation [Unknown]
  - Conjunctivitis [Not Recovered/Not Resolved]
  - Product use issue [Unknown]
  - Eye irritation [Unknown]

NARRATIVE: CASE EVENT DATE: 2017
